FAERS Safety Report 18059373 (Version 1)
Quarter: 2020Q3

REPORT INFORMATION
  Report Type: Spontaneous
  Country: RU (occurrence: RU)
  Receive Date: 20200723
  Receipt Date: 20200723
  Transmission Date: 20201103
  Serious: Yes (Other)
  Sender: FDA-Public Use
  Company Number: RU-TOPROL ACQUISITION LLC-2020-TOP-000293

PATIENT
  Sex: Female

DRUGS (2)
  1. METOPROLOL SUCCINATE. [Suspect]
     Active Substance: METOPROLOL SUCCINATE
     Indication: PRODUCT USED FOR UNKNOWN INDICATION
     Dosage: UNK, 1/4 OF TABLET
  2. METOPROLOL SUCCINATE. [Suspect]
     Active Substance: METOPROLOL SUCCINATE
     Dosage: UNK, 1/4 OF TABLET FOR 2 DAYS

REACTIONS (4)
  - Withdrawal syndrome [Unknown]
  - Heart rate decreased [Recovered/Resolved]
  - Intentional product misuse [Recovered/Resolved]
  - Heart rate increased [Unknown]
